FAERS Safety Report 7879808-6 (Version None)
Quarter: 2011Q4

REPORT INFORMATION
  Report Type: 
  Country: None (occurrence: None)
  Receive Date: 20111101
  Receipt Date: 20100521
  Transmission Date: 20120403
  Serious: No
  Sender: FDA-Public Use
  Company Number: US-BAYER-201023714NA

PATIENT

DRUGS (1)
  1. AVELOX [Suspect]
     Route: 048

REACTIONS (1)
  - PYREXIA [None]
